FAERS Safety Report 7585645-2 (Version None)
Quarter: 2011Q2

REPORT INFORMATION
  Report Type: 
  Country: None (occurrence: None)
  Receive Date: 20110624
  Receipt Date: 20110609
  Transmission Date: 20111010
  Serious: Yes (Hospitalization)
  Sender: FDA-Public Use
  Company Number: 2011MA006982

PATIENT
  Age: 13 Year
  Sex: Female

DRUGS (5)
  1. BROMAZEPAM (BROMAZEPAM) [Suspect]
     Indication: PRODUCT USED FOR UNKNOWN INDICATION
  2. DEXTROPROPOXYPHENE (DEXTROPROPOXYPHENE) [Suspect]
     Indication: PRODUCT USED FOR UNKNOWN INDICATION
  3. TRAMADOL HYDROCHLORIDE [Suspect]
     Indication: PRODUCT USED FOR UNKNOWN INDICATION
  4. NORPROPOXYPHENE (NO PREF. NAME) [Suspect]
     Indication: PRODUCT USED FOR UNKNOWN INDICATION
  5. FLUOXETINE [Suspect]
     Indication: PRODUCT USED FOR UNKNOWN INDICATION

REACTIONS (8)
  - DIZZINESS [None]
  - ATAXIA [None]
  - SOMNOLENCE [None]
  - RESPIRATORY ACIDOSIS [None]
  - BODY TEMPERATURE DECREASED [None]
  - DRUG SCREEN POSITIVE [None]
  - COMA SCALE ABNORMAL [None]
  - HEART RATE DECREASED [None]
